FAERS Safety Report 11796901 (Version 1)
Quarter: 2015Q4

REPORT INFORMATION
  Report Type: Spontaneous
  Country: US (occurrence: None)
  Receive Date: 20151202
  Receipt Date: 20151202
  Transmission Date: 20160305
  Serious: Yes (Hospitalization)
  Sender: FDA-Public Use
  Company Number: None

PATIENT
  Age: 62 Year
  Sex: Female
  Weight: 69.8 kg

DRUGS (9)
  1. PHENERGAN [Concomitant]
     Active Substance: PROMETHAZINE HYDROCHLORIDE
  2. TAXOTERE [Suspect]
     Active Substance: DOCETAXEL
     Indication: BREAST CANCER
     Route: 042
     Dates: start: 20151119
  3. PARAPLATIN [Suspect]
     Active Substance: CARBOPLATIN
     Indication: BREAST CANCER
     Dosage: AUC 6 3 WEEKS INTRAVENOUS
     Route: 042
     Dates: start: 20151119
  4. CEFEPIME [Concomitant]
     Active Substance: CEFEPIME HYDROCHLORIDE
  5. DECADRON [Concomitant]
     Active Substance: DEXAMETHASONE
  6. CIPORFLOXACIN [Concomitant]
  7. ZOFRAN [Concomitant]
     Active Substance: ONDANSETRON HYDROCHLORIDE
  8. VANCOMYCIN [Concomitant]
     Active Substance: VANCOMYCIN
  9. NEUPOGEN [Concomitant]
     Active Substance: FILGRASTIM

REACTIONS (8)
  - Gastrointestinal oedema [None]
  - Sepsis [None]
  - Abdominal pain [None]
  - Diarrhoea [None]
  - Proteus test positive [None]
  - Culture urine positive [None]
  - Febrile neutropenia [None]
  - Urinary tract infection [None]

NARRATIVE: CASE EVENT DATE: 20151127
